FAERS Safety Report 7283017-1 (Version None)
Quarter: 2011Q1

REPORT INFORMATION
  Report Type: 
  Country: None (occurrence: None)
  Receive Date: 20110209
  Receipt Date: 20110131
  Transmission Date: 20110831
  Serious: Yes (Hospitalization)
  Sender: FDA-Public Use
  Company Number: FR-JNJFOC-HOAFF4022

PATIENT
  Age: 62 Year
  Sex: Male

DRUGS (3)
  1. MICONAZOLE [Suspect]
     Indication: CANDIDIASIS
     Route: 061
  2. MICONAZOLE [Suspect]
     Route: 061
  3. FLUINDIONE [Interacting]
     Indication: THROMBOANGIITIS OBLITERANS
     Route: 065

REACTIONS (4)
  - DRUG INTERACTION [None]
  - ABDOMINAL DISTENSION [None]
  - HAEMATURIA [None]
  - COAGULATION TIME PROLONGED [None]
